FAERS Safety Report 7623069-X (Version None)
Quarter: 2011Q3

REPORT INFORMATION
  Report Type: 
  Country: None (occurrence: None)
  Receive Date: 20110720
  Receipt Date: 20110713
  Transmission Date: 20111222
  Serious: Yes (Hospitalization)
  Sender: FDA-Public Use
  Company Number: MX-SANOFI-AVENTIS-2011SA044911

PATIENT
  Age: 56 Year
  Sex: Male

DRUGS (8)
  1. CYCLOSPORINE [Concomitant]
     Route: 048
     Dates: start: 20110701
  2. MYCOPHENOLIC ACID [Concomitant]
     Route: 048
     Dates: start: 20110701
  3. METOPROLOL TARTRATE [Concomitant]
     Route: 048
  4. ATORVASTATIN [Concomitant]
     Route: 048
     Dates: start: 20100701
  5. ADALAT [Concomitant]
     Route: 048
  6. PRAVASTATIN [Concomitant]
     Route: 048
     Dates: start: 20100701
  7. CORTISONE ACETATE [Concomitant]
     Route: 048
     Dates: start: 20110701
  8. INSULIN GLARGINE [Suspect]
     Indication: TYPE 2 DIABETES MELLITUS
     Route: 058
     Dates: start: 20100101

REACTIONS (3)
  - HYPOGLYCAEMIA [None]
  - HYPERGLYCAEMIA [None]
  - RENAL TRANSPLANT [None]
